FAERS Safety Report 8349357-X (Version None)
Quarter: 2012Q2

REPORT INFORMATION
  Report Type: 
  Country: None (occurrence: None)
  Receive Date: 20120510
  Receipt Date: 20120504
  Transmission Date: 20120825
  Serious: Yes (Other)
  Sender: FDA-Public Use
  Company Number: GB-PFIZER INC-2012110693

PATIENT
  Sex: Male

DRUGS (2)
  1. EFFEXOR XR [Suspect]
     Dosage: 225 MG, 1X/DAY
  2. EFFEXOR XR [Suspect]
     Dosage: 150 MG, 1X/DAY

REACTIONS (6)
  - WITHDRAWAL SYNDROME [None]
  - AGGRESSION [None]
  - PHOTOPHOBIA [None]
  - HEADACHE [None]
  - CONVULSION [None]
  - IRRITABILITY [None]
